FAERS Safety Report 23792162 (Version 2)
Quarter: 2024Q4

REPORT INFORMATION
  Report Type: Report from Study
  Country: DE (occurrence: DE)
  Receive Date: 20240429
  Receipt Date: 20241204
  Transmission Date: 20250114
  Serious: Yes (Hospitalization)
  Sender: ROCHE
  Company Number: DE-ROCHE-3362731

PATIENT
  Age: 32 Year
  Sex: Female

DRUGS (4)
  1. OCREVUS [Suspect]
     Active Substance: OCRELIZUMAB
     Indication: Relapsing-remitting multiple sclerosis
     Dosage: SUBSEQUENT DOSE ON 07/JUN/2023
     Route: 042
     Dates: start: 20230523
  2. OCREVUS [Suspect]
     Active Substance: OCRELIZUMAB
     Dosage: LAST OCRELIZUMAB DOSE BEFORE PREGNANCY.
     Route: 042
     Dates: start: 20231212, end: 20231212
  3. LEVOTHYROXINE [Concomitant]
     Active Substance: LEVOTHYROXINE
  4. VITAMIN D3 [Concomitant]
     Active Substance: CHOLECALCIFEROL

REACTIONS (9)
  - Pyrexia [Recovered/Resolved]
  - Pain in extremity [Recovered/Resolved]
  - Dry eye [Not Recovered/Not Resolved]
  - Eye movement disorder [Not Recovered/Not Resolved]
  - Herpes zoster [Recovered/Resolved]
  - Immunoglobulins decreased [Recovered/Resolved]
  - C-reactive protein abnormal [Recovered/Resolved]
  - Maternal exposure before pregnancy [Unknown]
  - Blood glucose increased [Not Recovered/Not Resolved]

NARRATIVE: CASE EVENT DATE: 20230523
